FAERS Safety Report 7091735-3 (Version None)
Quarter: 2010Q4

REPORT INFORMATION
  Report Type: 
  Country: None (occurrence: None)
  Receive Date: 20101109
  Receipt Date: 20101026
  Transmission Date: 20110411
  Serious: Yes (Other)
  Sender: FDA-Public Use
  Company Number: PHHY2010DE74429

PATIENT
  Sex: Female

DRUGS (4)
  1. SANDOSTATIN LAR [Suspect]
     Indication: PITUITARY TUMOUR BENIGN
     Dosage: 1 DF, QMO
     Route: 030
     Dates: start: 20100413
  2. RASILEZ [Suspect]
     Dosage: 150 MG, QD
     Route: 048
     Dates: start: 20071221
  3. ISOTRETINOIN [Suspect]
     Dosage: 20 MG, QD
     Route: 048
     Dates: start: 20100628
  4. EUTHYROX [Concomitant]
     Dosage: 75MICROGRAM, QD
     Route: 048
     Dates: start: 20100406

REACTIONS (1)
  - ALOPECIA [None]
